FAERS Safety Report 8234749-X (Version None)
Quarter: 2012Q1

REPORT INFORMATION
  Report Type: 
  Country: None (occurrence: None)
  Receive Date: 20120326
  Receipt Date: 20120315
  Transmission Date: 20120608
  Serious: Yes (Life-Threatening, Hospitalization, Other)
  Sender: FDA-Public Use
  Company Number: US-ELI_LILLY_AND_COMPANY-US201112005824

PATIENT
  Sex: Male
  Weight: 54 kg

DRUGS (15)
  1. ATENOLOL [Concomitant]
  2. POLYETHYLENE GLYCOL [Concomitant]
  3. VITAMIN D [Concomitant]
  4. SALT [Concomitant]
  5. IRON [Concomitant]
  6. CALCIUM CARBONATE [Concomitant]
  7. ERYTHROMYCIN [Concomitant]
  8. TRAVATAN Z [Concomitant]
  9. ALBUTEROL [Concomitant]
  10. RANITIDINE [Concomitant]
  11. FORTEO [Suspect]
     Dosage: 20 UG, QD
     Route: 058
  12. LEVOTHYROXINE SODIUM [Concomitant]
  13. FORTEO [Suspect]
     Indication: OSTEOPOROSIS
     Dosage: 20 UG, QD
     Route: 058
     Dates: start: 20110301
  14. MULTI-VITAMIN [Concomitant]
  15. TETRYZOLINE HYDROCHLORIDE [Concomitant]

REACTIONS (10)
  - EMPYEMA [None]
  - INFLAMMATION [None]
  - TRACHEOSTOMY [None]
  - PLEURAL EFFUSION [None]
  - PNEUMONIA [None]
  - MECHANICAL VENTILATION [None]
  - ASPIRATION [None]
  - NASOPHARYNGITIS [None]
  - MUSCULOSKELETAL STIFFNESS [None]
  - TOOTH EXTRACTION [None]
